FAERS Safety Report 24451728 (Version 3)
Quarter: 2025Q3

REPORT INFORMATION
  Report Type: Report from Study
  Country: CO (occurrence: CO)
  Receive Date: 20241017
  Receipt Date: 20250808
  Transmission Date: 20251021
  Serious: Yes (Other)
  Sender: BIOGEN
  Company Number: CO-BIOGEN-2022BI01172731

PATIENT
  Sex: Male
  Weight: 25 kg

DRUGS (5)
  1. SPINRAZA [Suspect]
     Active Substance: NUSINERSEN
     Indication: Spinal muscular atrophy
     Dosage: LAST DOSE ON 30 MAY 2025
     Route: 050
     Dates: start: 20220401
  2. ALBUTEROL [Concomitant]
     Active Substance: ALBUTEROL
     Indication: Spinal muscular atrophy
     Dosage: 2.5 CM
     Route: 050
     Dates: start: 202109
  3. ALBUTEROL [Concomitant]
     Active Substance: ALBUTEROL
     Route: 050
     Dates: start: 202202
  4. ALBUTEROL [Concomitant]
     Active Substance: ALBUTEROL
     Dosage: 5 CC
     Route: 050
  5. ALBUTEROL [Concomitant]
     Active Substance: ALBUTEROL
     Route: 050
     Dates: start: 2022

REACTIONS (8)
  - Autism spectrum disorder [Not Recovered/Not Resolved]
  - Neurodevelopmental delay [Not Recovered/Not Resolved]
  - Aphasia [Not Recovered/Not Resolved]
  - Intellectual disability [Not Recovered/Not Resolved]
  - Neurological examination abnormal [Not Recovered/Not Resolved]
  - Anal incontinence [Not Recovered/Not Resolved]
  - Urinary incontinence [Not Recovered/Not Resolved]
  - Motor dysfunction [Not Recovered/Not Resolved]

NARRATIVE: CASE EVENT DATE: 20220101
